FAERS Safety Report 17648198 (Version 2)
Quarter: 2020Q2

REPORT INFORMATION
  Report Type: Other
  Country: PT (occurrence: PT)
  Receive Date: 20200408
  Receipt Date: 20200416
  Transmission Date: 20200713
  Serious: Yes (Other)
  Sender: FDA-Public Use
  Company Number: PT-EMD SERONO-9152906

PATIENT
  Age: 61 Year
  Sex: Male

DRUGS (4)
  1. METFORMIN [Suspect]
     Active Substance: METFORMIN HYDROCHLORIDE
     Indication: DIABETES MELLITUS
     Dosage: UNK
     Route: 065
  2. INSULIN [Suspect]
     Active Substance: INSULIN NOS
     Indication: DIABETES MELLITUS
     Dosage: WAS RESTARTED
     Route: 065
  3. INSULINE GLARGINE [Suspect]
     Active Substance: INSULIN GLARGINE
     Indication: DIABETES MELLITUS
     Route: 065
  4. DULAGLUTIDE. [Suspect]
     Active Substance: DULAGLUTIDE
     Indication: DIABETES MELLITUS
     Route: 065

REACTIONS (8)
  - Therapeutic product effect incomplete [Unknown]
  - Product administration error [Unknown]
  - Genitourinary symptom [Unknown]
  - Drug ineffective [Unknown]
  - Blood glucose increased [Unknown]
  - Gastrointestinal disorder [Recovered/Resolved]
  - Treatment noncompliance [Unknown]
  - Urinary tract disorder [Recovered/Resolved]
